FAERS Safety Report 4709516-1 (Version None)
Quarter: 2005Q3

REPORT INFORMATION
  Report Type: 
  Country: None (occurrence: None)
  Receive Date: 20050706
  Receipt Date: 20050624
  Transmission Date: 20060218
  Serious: Yes (Hospitalization)
  Sender: FDA-Public Use
  Company Number: 2005093217

PATIENT
  Age: 38 Year
  Sex: Female

DRUGS (5)
  1. ZELDOX                                  (ZIPRASIDONE) [Suspect]
     Indication: SCHIZOPHRENIA
     Dosage: 120 MG, ORAL
     Route: 048
     Dates: start: 20041004
  2. AKINETON [Concomitant]
     Dates: start: 20041011
  3. LORAZEPAM [Concomitant]
     Dates: start: 20040813, end: 20040822
  4. TAXILAN          (PERAZINE) [Concomitant]
     Dates: end: 20040101
  5. RISPERDAL [Concomitant]

REACTIONS (2)
  - ALANINE AMINOTRANSFERASE INCREASED [None]
  - HEPATIC ENZYME INCREASED [None]
